FAERS Safety Report 21620164 (Version 1)
Quarter: 2022Q4

REPORT INFORMATION
  Report Type: Other
  Country: None (occurrence: CN)
  Receive Date: 20221121
  Receipt Date: 20221121
  Transmission Date: 20230113
  Serious: Yes (Death, Hospitalization)
  Sender: FDA-Public Use
  Company Number: CN-Ajanta Pharma USA Inc.-2135086

PATIENT
  Age: 13 Year
  Sex: Female

DRUGS (3)
  1. LAMOTRIGINE [Suspect]
     Active Substance: LAMOTRIGINE
     Indication: Seizure
  2. VALPROATE SODIUM [Suspect]
     Active Substance: VALPROATE SODIUM
  3. CLONAZEPAM [Concomitant]
     Active Substance: CLONAZEPAM

REACTIONS (6)
  - Acute hepatic failure [Fatal]
  - Hepatic encephalopathy [Not Recovered/Not Resolved]
  - Seizure [Not Recovered/Not Resolved]
  - Drug interaction [Fatal]
  - Overdose [Fatal]
  - Pyrexia [Not Recovered/Not Resolved]
